FAERS Safety Report 9773180 (Version 2)
Quarter: 2014Q1

REPORT INFORMATION
  Report Type: Spontaneous
  Country: BR (occurrence: BR)
  Receive Date: 20131219
  Receipt Date: 20140311
  Transmission Date: 20141002
  Serious: Yes (Hospitalization)
  Sender: FDA-Public Use
  Company Number: BR-ELI_LILLY_AND_COMPANY-BR201312005148

PATIENT
  Sex: 0

DRUGS (1)
  1. HUMULIN N [Suspect]
     Indication: GESTATIONAL DIABETES
     Dosage: UNK, UNKNOWN
     Route: 064
     Dates: start: 201308

REACTIONS (2)
  - Hypoglycaemia neonatal [Recovered/Resolved]
  - Foetal exposure during pregnancy [Unknown]
